FAERS Safety Report 4656052-7 (Version None)
Quarter: 2005Q2

REPORT INFORMATION
  Report Type: 
  Country: None (occurrence: None)
  Receive Date: 20050506
  Receipt Date: 20050420
  Transmission Date: 20051028
  Serious: Yes (Other)
  Sender: FDA-Public Use
  Company Number: TRP_0103_2005

PATIENT
  Age: 56 Year
  Sex: Male

DRUGS (6)
  1. RIBASPHERE [Suspect]
     Indication: HEPATITIS C
     Dosage: 1200 MG QDAY PO
     Route: 048
     Dates: start: 20050112, end: 20050323
  2. INFERGEN [Suspect]
     Indication: HEPATITIS C
     Dosage: 9 MCG QDAY SC
     Route: 058
     Dates: start: 20050112, end: 20050323
  3. MOBIC [Concomitant]
  4. AVALIDE [Concomitant]
  5. MULTI-VITAMINS [Concomitant]
  6. TYLENOL (CAPLET) [Concomitant]

REACTIONS (1)
  - SUICIDAL IDEATION [None]
